FAERS Safety Report 23868391 (Version 2)
Quarter: 2024Q2

REPORT INFORMATION
  Report Type: Spontaneous
  Country: US (occurrence: US)
  Receive Date: 20240517
  Receipt Date: 20240524
  Transmission Date: 20240716
  Serious: Yes (Life-Threatening, Hospitalization, Other)
  Sender: FDA-Public Use
  Company Number: US-PFIZER INC-PV202400064125

PATIENT
  Age: 67 Year
  Sex: Female

DRUGS (21)
  1. VANCOMYCIN HYDROCHLORIDE [Suspect]
     Active Substance: VANCOMYCIN HYDROCHLORIDE
     Indication: Preoperative care
     Dosage: ONE DOSE (PRE-OPERATIVELY)
  2. ASPIRIN [Concomitant]
     Active Substance: ASPIRIN
     Dosage: UNK
  3. SIMVASTATIN [Concomitant]
     Active Substance: SIMVASTATIN
     Dosage: UNK
  4. VITAMIN D NOS [Concomitant]
     Active Substance: CHOLECALCIFEROL\ERGOCALCIFEROL
     Dosage: UNK
  5. CALCIUM [Concomitant]
     Active Substance: CALCIUM
     Dosage: UNK
  6. CEFUROXIME [Concomitant]
     Active Substance: CEFUROXIME
     Indication: Preoperative care
     Dosage: UNK, PRE-OPERATIVELY
  7. BUPIVACAINE [Concomitant]
     Active Substance: BUPIVACAINE
     Indication: Preoperative care
     Dosage: UNK, PRE-OPERATIVELY
  8. EPHEDRINE [Concomitant]
     Active Substance: EPHEDRINE
     Indication: Preoperative care
     Dosage: UNK, PREOPERATIVELY
  9. FAMOTIDINE [Concomitant]
     Active Substance: FAMOTIDINE
     Indication: Preoperative care
     Dosage: UNK, PREOPERATIVELY
  10. FENTANYL [Concomitant]
     Active Substance: FENTANYL\FENTANYL CITRATE
     Indication: Preoperative care
     Dosage: UNK, PREOPERATIVELY
  11. HALOPERIDOL [Concomitant]
     Active Substance: HALOPERIDOL
     Indication: Preoperative care
     Dosage: UNK, PREOPERATIVELY
  12. HEPARIN [Concomitant]
     Active Substance: HEPARIN SODIUM
     Indication: Preoperative care
     Dosage: UNK, PREOPERATIVELY
  13. HYDROMORPHONE [Concomitant]
     Active Substance: HYDROMORPHONE
     Indication: Preoperative care
     Dosage: UNK, PREOPERATIVELY
  14. MANNITOL [Concomitant]
     Active Substance: MANNITOL
     Indication: Preoperative care
     Dosage: UNK, PREOPERATIVELY
  15. MIDAZOLAM [Concomitant]
     Active Substance: MIDAZOLAM
     Indication: Preoperative care
     Dosage: UNK, PREOPERATIVELY
  16. NOREPINEPHRINE [Concomitant]
     Active Substance: NOREPINEPHRINE\NOREPINEPHRINE BITARTRATE
     Indication: Preoperative care
     Dosage: UNK, PREOPERATIVELY
  17. PHENYLEPHRINE [Concomitant]
     Active Substance: PHENYLEPHRINE HYDROCHLORIDE
     Indication: Preoperative care
     Dosage: UNK, PREOPERATIVELY
  18. PROPOFOL [Concomitant]
     Active Substance: PROPOFOL
     Indication: Preoperative care
     Dosage: UNK, PREOPERATIVELY
  19. PROTAMINE SULFATE [Concomitant]
     Active Substance: PROTAMINE SULFATE
     Indication: Preoperative care
     Dosage: UNK, PREOPERATIVELY
  20. ROCURONIUM [Concomitant]
     Active Substance: ROCURONIUM BROMIDE
     Indication: Preoperative care
     Dosage: UNK, PREOPERATIVELY
  21. SUGAMMADEX SODIUM [Concomitant]
     Active Substance: SUGAMMADEX SODIUM
     Indication: Preoperative care
     Dosage: UNK, PREOPERATIVELY

REACTIONS (1)
  - Fanconi syndrome [Unknown]
